FAERS Safety Report 4598012-0 (Version None)
Quarter: 2005Q1

REPORT INFORMATION
  Report Type: 
  Country: None (occurrence: None)
  Receive Date: 20050207
  Receipt Date: 20040916
  Transmission Date: 20050727
  Serious: Yes (Other)
  Sender: FDA-Public Use
  Company Number: 800131

PATIENT
  Age: 50 Year
  Sex: Female
  Weight: 99.7913 kg

DRUGS (9)
  1. DIANEAL [Suspect]
     Indication: PERITONEAL DIALYSIS
     Dosage: 10 L; QD; INTRAPERITONEAL
     Route: 033
     Dates: start: 20000801
  2. POTASSIUM CHLORIDE [Concomitant]
  3. SYNTHROID [Concomitant]
  4. ZOCOR [Concomitant]
  5. HECTOROL [Concomitant]
  6. VITAMINS [Concomitant]
  7. IRON [Concomitant]
  8. OMEPRAZOLE [Concomitant]
  9. RENAGEL [Concomitant]

REACTIONS (1)
  - PERITONITIS [None]
